FAERS Safety Report 7019184-4 (Version None)
Quarter: 2010Q3

REPORT INFORMATION
  Report Type: 
  Country: None (occurrence: None)
  Receive Date: 20100928
  Receipt Date: 20100914
  Transmission Date: 20110219
  Serious: Yes (Hospitalization, Other)
  Sender: FDA-Public Use
  Company Number: BE-AMGEN-UK222032

PATIENT
  Sex: Male
  Weight: 94 kg

DRUGS (2)
  1. ARANESP [Suspect]
     Indication: ANAEMIA OF MALIGNANT DISEASE
     Route: 058
     Dates: start: 20070321, end: 20070424
  2. CISPLATIN [Concomitant]

REACTIONS (3)
  - LEG AMPUTATION [None]
  - PERIPHERAL ISCHAEMIA [None]
  - THROMBOSIS [None]
